FAERS Safety Report 14219434 (Version 3)
Quarter: 2018Q1

REPORT INFORMATION
  Report Type: Spontaneous
  Country: US (occurrence: US)
  Receive Date: 20171123
  Receipt Date: 20180216
  Transmission Date: 20180508
  Serious: No
  Sender: FDA-Public Use
  Company Number: US-JNJFOC-20171000074

PATIENT
  Age: 57 Year
  Sex: Female
  Weight: 105 kg

DRUGS (12)
  1. PROTONIX [Concomitant]
     Active Substance: PANTOPRAZOLE SODIUM
     Route: 065
  2. AMLODIPINE [Concomitant]
     Active Substance: AMLODIPINE BESYLATE
     Route: 065
  3. SYNTHROID [Concomitant]
     Active Substance: LEVOTHYROXINE SODIUM
     Route: 065
  4. ZOFRAN [Concomitant]
     Active Substance: ONDANSETRON HYDROCHLORIDE
     Route: 065
  5. LINZESS [Concomitant]
     Active Substance: LINACLOTIDE
     Route: 065
  6. LUNESTA [Concomitant]
     Active Substance: ESZOPICLONE
     Route: 065
  7. DURAGESIC [Suspect]
     Active Substance: FENTANYL
     Indication: PAIN
     Dosage: 75 UG PATCH X 2 Q.3 DAYS
     Route: 062
  8. DOMPERIDONE [Concomitant]
     Active Substance: DOMPERIDONE
     Route: 065
  9. VYTORIN [Concomitant]
     Active Substance: EZETIMIBE\SIMVASTATIN
     Dosage: 10/20 MG
     Route: 065
  10. TRAZODONE [Concomitant]
     Active Substance: TRAZODONE HYDROCHLORIDE
     Route: 065
  11. BENADRYL [Concomitant]
     Active Substance: DIPHENHYDRAMINE HYDROCHLORIDE
     Route: 065
  12. RELISTOR [Concomitant]
     Active Substance: METHYLNALTREXONE BROMIDE
     Route: 065

REACTIONS (6)
  - Product storage error [Unknown]
  - Drug dose omission [Unknown]
  - Wrong technique in product usage process [Unknown]
  - Withdrawal syndrome [Unknown]
  - Agitation [Unknown]
  - Product adhesion issue [Unknown]

NARRATIVE: CASE EVENT DATE: 201709
